FAERS Safety Report 5307539-5 (Version None)
Quarter: 2007Q2

REPORT INFORMATION
  Report Type: 
  Country: None (occurrence: None)
  Receive Date: 20070425
  Receipt Date: 20070413
  Transmission Date: 20071010
  Serious: Yes (Hospitalization)
  Sender: FDA-Public Use
  Company Number: US-PFIZER INC-2007031838

PATIENT
  Age: 69 Year
  Sex: Female

DRUGS (2)
  1. SERTRALINE [Suspect]
     Indication: DEPRESSION
     Dosage: DAILY DOSE:50MG
     Route: 048
  2. METHADONE HCL [Suspect]
     Indication: PAIN
     Route: 048

REACTIONS (7)
  - MENTAL STATUS CHANGES [None]
  - MUTISM [None]
  - MYOCLONUS [None]
  - NAUSEA [None]
  - PYREXIA [None]
  - SEROTONIN SYNDROME [None]
  - VOMITING [None]
